FAERS Safety Report 12415923 (Version 4)
Quarter: 2017Q1

REPORT INFORMATION
  Report Type: Spontaneous
  Country: GB (occurrence: GB)
  Receive Date: 20160530
  Receipt Date: 20170103
  Transmission Date: 20170428
  Serious: Yes (Other)
  Sender: FDA-Public Use
  Company Number: GB-PFIZER INC-2016271228

PATIENT
  Sex: Male

DRUGS (3)
  1. DEFEROXAMINE MESILATE [Suspect]
     Active Substance: DEFEROXAMINE MESYLATE
     Dosage: 1.071 G, DAILY (1.5 G, 5 IN 1 WK)
     Route: 058
     Dates: start: 20160427, end: 20160509
  2. WATER FOR INJECTIONS [Suspect]
     Active Substance: WATER
     Indication: MEDICATION DILUTION
     Dosage: 35 ML, DAILY (49 ML, 5 IN 1 WK)
     Route: 058
     Dates: start: 20160427, end: 20160509
  3. SODIUM CHLORIDE. [Suspect]
     Active Substance: SODIUM CHLORIDE
     Indication: MEDICATION DILUTION
     Dosage: 35 ML, DAILY (49 ML, 5 IN 1 WK)
     Route: 058
     Dates: start: 20160427, end: 20160509

REACTIONS (1)
  - Retinal haemorrhage [Unknown]

NARRATIVE: CASE EVENT DATE: 20160428
